FAERS Safety Report 24991225 (Version 4)
Quarter: 2025Q3

REPORT INFORMATION
  Report Type: Report from Study
  Country: CA (occurrence: CA)
  Receive Date: 20250220
  Receipt Date: 20250802
  Transmission Date: 20251020
  Serious: Yes (Hospitalization)
  Sender: ALEXION PHARMACEUTICALS
  Company Number: CA-AstraZeneca-CH-00810023A

PATIENT
  Sex: Female

DRUGS (4)
  1. TEZEPELUMAB [Suspect]
     Active Substance: TEZEPELUMAB
     Indication: Asthma
  2. TEZEPELUMAB [Suspect]
     Active Substance: TEZEPELUMAB
  3. SYMBICORT [Concomitant]
     Active Substance: BUDESONIDE\FORMOTEROL FUMARATE DIHYDRATE
     Dosage: 200 MICROGRAM, QD (2 PUFFS)
     Route: 065
     Dates: start: 20200331
  4. VENTOLIN [Concomitant]
     Active Substance: ALBUTEROL SULFATE
     Route: 065

REACTIONS (9)
  - Illness [Unknown]
  - Cellulitis [Unknown]
  - Renal disorder [Recovered/Resolved]
  - Nasopharyngitis [Recovering/Resolving]
  - Drug ineffective [Unknown]
  - Visual impairment [Unknown]
  - Fall [Unknown]
  - Haemoglobin decreased [Unknown]
  - Asthma [Unknown]
